FAERS Safety Report 22748763 (Version 2)
Quarter: 2024Q2

REPORT INFORMATION
  Report Type: Report from Study
  Country: US (occurrence: US)
  Receive Date: 20230725
  Receipt Date: 20240430
  Transmission Date: 20240716
  Serious: Yes (Other)
  Sender: FDA-Public Use
  Company Number: US-ABBVIE-5340243

PATIENT
  Sex: Male

DRUGS (8)
  1. VENCLEXTA [Suspect]
     Active Substance: VENETOCLAX
     Indication: Acute myeloid leukaemia
     Dosage: FORM STRENGTH- 50 MILLIGRAM?REGIMEN: 1?TAKE ONE TABLET BY MOUTH DAILY WITH BREAKFAST FOR SEVEN DA...
     Route: 048
  2. VENCLEXTA [Suspect]
     Active Substance: VENETOCLAX
     Indication: Acute myeloid leukaemia
     Dosage: FORM STRENGTH- 50 MILLIGRAM?REGIMEN: 2?1 PER ORAL DAILY WITH BREAKFAST FOR SEVEN DAYS ON, THEN 28...
     Route: 048
  3. VENCLEXTA [Suspect]
     Active Substance: VENETOCLAX
     Indication: Acute myeloid leukaemia
     Dosage: STRENGTH: 50 MG
     Route: 048
     Dates: start: 20240115, end: 20240115
  4. VENCLEXTA [Suspect]
     Active Substance: VENETOCLAX
     Indication: Acute myeloid leukaemia
     Dosage: FORM STRENGTH- 50 MILLIGRAM?REGIMEN 3
     Route: 048
  5. VENCLEXTA [Suspect]
     Active Substance: VENETOCLAX
     Indication: Acute myeloid leukaemia
     Dosage: FORM STRENGTH- 50 MILLIGRAM?REGIMEN 4?TWO TABLETS BY MOUTH DAILY WITH BREAKFAST FOR 7 DAYS FOR A ...
     Route: 048
  6. VENCLEXTA [Suspect]
     Active Substance: VENETOCLAX
     Indication: Acute myeloid leukaemia
     Dosage: FORM STRENGTH- 50 MILLIGRAM?REGIMEN 5?TAKE ONE TABLET BY MOUTH EVERY DAY WITH BREAKFAST FOR 7 DAY...
     Route: 048
  7. ACYCLOVIR [Concomitant]
     Active Substance: ACYCLOVIR
     Indication: Product used for unknown indication
  8. FLUCONAZOLE [Concomitant]
     Active Substance: FLUCONAZOLE
     Indication: Product used for unknown indication

REACTIONS (2)
  - Chemotherapy [Unknown]
  - Product prescribing error [Unknown]
